FAERS Safety Report 15488690 (Version 1)
Quarter: 2018Q4

REPORT INFORMATION
  Report Type: Spontaneous
  Country: CN (occurrence: CN)
  Receive Date: 20181011
  Receipt Date: 20181011
  Transmission Date: 20190205
  Serious: Yes (Other)
  Sender: FDA-Public Use
  Company Number: CN-TERSERA THERAPEUTICS LLC-TSR2018002257

PATIENT

DRUGS (2)
  1. ZOLADEX [Suspect]
     Active Substance: GOSERELIN ACETATE
     Indication: PRODUCT USED FOR UNKNOWN INDICATION
     Dosage: 3.6 MILLIGRAM, Q1 MONTH
     Route: 058
  2. ZOLADEX [Suspect]
     Active Substance: GOSERELIN ACETATE
     Dosage: 3.6 MILLIGRAM, Q1 MONTH
     Route: 058
     Dates: start: 20180930

REACTIONS (6)
  - Injection related reaction [Unknown]
  - Abdominal pain [Recovered/Resolved]
  - Headache [Unknown]
  - Abdominal mass [Not Recovered/Not Resolved]
  - Coma [Recovered/Resolved]
  - Injection site pain [Recovered/Resolved]
